FAERS Safety Report 4974837-4 (Version None)
Quarter: 2006Q1

REPORT INFORMATION
  Report Type: 
  Country: None (occurrence: None)
  Receive Date: 20060227
  Receipt Date: 20050211
  Transmission Date: 20060701
  Serious: No
  Sender: FDA-Public Use
  Company Number: 05P-163-0290324-00

PATIENT
  Age: 54 Year
  Sex: Female
  Weight: 54.4316 kg

DRUGS (3)
  1. VICODIN [Suspect]
     Indication: PAIN
     Dosage: AS REQUIRED, PER ORAL
     Route: 048
     Dates: start: 20050208, end: 20050209
  2. ZOLPIDEM TARTRATE [Concomitant]
  3. CEPHALEXIN MONOHYDRATE [Concomitant]

REACTIONS (2)
  - DEAFNESS [None]
  - HYPOACUSIS [None]
